FAERS Safety Report 11264918 (Version 1)
Quarter: 2015Q3

REPORT INFORMATION
  Report Type: Spontaneous
  Country: US (occurrence: US)
  Receive Date: 20150713
  Receipt Date: 20150713
  Transmission Date: 20151125
  Serious: No
  Sender: FDA-Public Use
  Company Number: US-009507513-1506USA015304

PATIENT
  Age: 19 Year
  Sex: Female
  Weight: 101.13 kg

DRUGS (1)
  1. NEXPLANON [Suspect]
     Active Substance: ETONOGESTREL
     Indication: CONTRACEPTION
     Dosage: 1 ROD/3 YEARS, INSERTED IN RIGHT ARM
     Route: 058
     Dates: start: 20150522

REACTIONS (3)
  - Haemorrhage [Unknown]
  - Haemorrhage [Not Recovered/Not Resolved]
  - Anxiety [Unknown]

NARRATIVE: CASE EVENT DATE: 20150619
